FAERS Safety Report 4642402-4 (Version None)
Quarter: 2005Q2

REPORT INFORMATION
  Report Type: 
  Country: None (occurrence: None)
  Receive Date: 20050422
  Receipt Date: 20050412
  Transmission Date: 20051028
  Serious: Yes (Hospitalization)
  Sender: FDA-Public Use
  Company Number: CA-BRISTOL-MYERS SQUIBB COMPANY-12936373

PATIENT
  Age: 41 Year
  Sex: Female

DRUGS (6)
  1. PACLITAXEL [Suspect]
     Indication: BREAST CANCER
     Route: 042
     Dates: start: 20050228, end: 20050301
  2. NEUPOGEN [Suspect]
     Route: 058
     Dates: start: 20050314, end: 20050314
  3. EPOGEN [Suspect]
     Route: 058
     Dates: start: 20050315, end: 20050315
  4. DEXAMETHASONE [Concomitant]
     Route: 048
     Dates: start: 20050301, end: 20050303
  5. ONDANSETRON [Concomitant]
     Route: 048
     Dates: start: 20050301, end: 20050303
  6. PROCHLORPERAZINE [Concomitant]
     Route: 048
     Dates: start: 20050301

REACTIONS (2)
  - PERICARDIAL EFFUSION [None]
  - PNEUMONITIS [None]
